FAERS Safety Report 6526793-5 (Version None)
Quarter: 2009Q4

REPORT INFORMATION
  Report Type: 
  Country: None (occurrence: None)
  Receive Date: 20091230
  Receipt Date: 20091221
  Transmission Date: 20100525
  Serious: Yes (Hospitalization)
  Sender: FDA-Public Use
  Company Number: 1000009255

PATIENT
  Age: 52 Year
  Sex: Female
  Weight: 99.8367 kg

DRUGS (12)
  1. LEXAPRO [Suspect]
     Indication: DEPRESSION
     Dosage: 10 MG (10 MG, 1 IN 1 D), ORAL
     Route: 048
     Dates: start: 20090406, end: 20090728
  2. PNEUMOVAX 23 [Concomitant]
  3. FLUVIRIN [Concomitant]
  4. NEXIUM [Concomitant]
  5. XANAX [Concomitant]
  6. ESTRADIOL [Concomitant]
  7. VALTREX [Concomitant]
  8. TRAZODONE HCL [Concomitant]
  9. WELLBUTRIN XL [Concomitant]
  10. COLACE [Concomitant]
  11. ESZOPICLONE [Concomitant]
  12. ZOLPIDEM [Concomitant]

REACTIONS (24)
  - ABDOMINAL PAIN [None]
  - ALANINE AMINOTRANSFERASE INCREASED [None]
  - ASPARTATE AMINOTRANSFERASE INCREASED [None]
  - ASTHENIA [None]
  - ATELECTASIS [None]
  - BACK PAIN [None]
  - BILE DUCT STONE [None]
  - BLOOD CALCIUM DECREASED [None]
  - BLOOD GLUCOSE INCREASED [None]
  - BLOOD POTASSIUM DECREASED [None]
  - CHEST PAIN [None]
  - DYSPNOEA [None]
  - FIBRIN D DIMER INCREASED [None]
  - HAEMANGIOMA OF LIVER [None]
  - HEADACHE [None]
  - HYPONATRAEMIA [None]
  - HYPOXIA [None]
  - IDIOPATHIC THROMBOCYTOPENIC PURPURA [None]
  - INFLUENZA [None]
  - INJECTION SITE CELLULITIS [None]
  - INJECTION SITE THROMBOSIS [None]
  - LUNG INFECTION [None]
  - OSTEOARTHRITIS [None]
  - RADICULOPATHY [None]
